FAERS Safety Report 11262223 (Version 1)
Quarter: 2015Q3

REPORT INFORMATION
  Report Type: Report from Study
  Country: FR (occurrence: FR)
  Receive Date: 20150710
  Receipt Date: 20150710
  Transmission Date: 20151125
  Serious: Yes (Hospitalization)
  Sender: FDA-Public Use
  Company Number: FR-GLAXOSMITHKLINE-FR2015GSK098291

PATIENT
  Age: 49 Year
  Sex: Male

DRUGS (6)
  1. COVERSYL [Concomitant]
     Active Substance: PERINDOPRIL
     Dosage: 4 MG, UNK
  2. MOPRAL [Concomitant]
     Active Substance: OMEPRAZOLE SODIUM
     Dosage: 20 MG, UNK
  3. PRAVADUAL [Concomitant]
     Active Substance: ASPIRIN\PRAVASTATIN
  4. TENORMIN [Concomitant]
     Active Substance: ATENOLOL
     Dosage: 50 MG, UNK
  5. OMEGA-3-ACID ETHYL ESTERS. [Suspect]
     Active Substance: OMEGA-3-ACID ETHYL ESTERS
     Indication: ISCHAEMIC HEART DISEASE PROPHYLAXIS
     Dosage: UNK
     Dates: start: 20061106
  6. PLAVIX [Concomitant]
     Active Substance: CLOPIDOGREL BISULFATE

REACTIONS (1)
  - Chest pain [Recovered/Resolved]

NARRATIVE: CASE EVENT DATE: 20070914
